FAERS Safety Report 21705413 (Version 1)
Quarter: 2022Q4

REPORT INFORMATION
  Report Type: Report from Study
  Country: AU (occurrence: None)
  Receive Date: 20221209
  Receipt Date: 20221209
  Transmission Date: 20230112
  Serious: Yes (Hospitalization)
  Sender: FDA-Public Use
  Company Number: AU-ROCHE-3233281

PATIENT
  Age: 71 Year
  Sex: Male
  Weight: 95 kg

DRUGS (8)
  1. COBIMETINIB [Suspect]
     Active Substance: COBIMETINIB
     Indication: Neoplasm malignant
     Route: 048
     Dates: start: 20221021, end: 20221125
  2. VEMURAFENIB [Suspect]
     Active Substance: VEMURAFENIB
     Indication: Neoplasm malignant
     Route: 048
     Dates: start: 20221021, end: 20221125
  3. MOXIFLOXACIN [Concomitant]
     Active Substance: MOXIFLOXACIN
     Route: 042
     Dates: start: 20221126
  4. PREDNISOLONE [Concomitant]
     Active Substance: PREDNISOLONE
     Route: 048
     Dates: start: 20221126
  5. CETIRIZINE [Concomitant]
     Active Substance: CETIRIZINE HYDROCHLORIDE
     Route: 048
     Dates: start: 20221126
  6. FUROSEMIDE [Concomitant]
     Active Substance: FUROSEMIDE
     Dosage: ONCE ONLY
     Route: 042
     Dates: start: 20221126, end: 20221126
  7. EPINEPHRINE [Concomitant]
     Active Substance: EPINEPHRINE
     Dosage: ONCE ONLY
     Route: 042
     Dates: start: 20221126, end: 20221126
  8. HYDROCORTISONE [Concomitant]
     Active Substance: HYDROCORTISONE
     Dosage: ONCE ONLY
     Route: 042
     Dates: start: 20221126, end: 20221126

REACTIONS (2)
  - Upper respiratory tract infection [Unknown]
  - Rash maculo-papular [Unknown]

NARRATIVE: CASE EVENT DATE: 20221127
